FAERS Safety Report 4494469-4 (Version None)
Quarter: 2004Q4

REPORT INFORMATION
  Report Type: 
  Country: None (occurrence: None)
  Receive Date: 20041102
  Receipt Date: 20041020
  Transmission Date: 20050328
  Serious: Yes (Hospitalization)
  Sender: FDA-Public Use
  Company Number: 2004240417FR

PATIENT
  Age: 56 Year
  Sex: Male

DRUGS (6)
  1. CELEBREX [Suspect]
     Dosage: 1 DF, DAILY, ORAL
     Route: 048
     Dates: start: 20030919, end: 20031002
  2. NAPROXENE SODICO DOROM (NAPROXEN) TABLET [Suspect]
     Dosage: 550 MG, DAILY, ORAL
     Route: 048
     Dates: start: 20030922, end: 20031004
  3. DELTASONE [Suspect]
     Dosage: 20 MG, DAILY, ORAL
     Route: 048
     Dates: start: 20030922, end: 20031004
  4. BREXICAM (PIROXICAM) TABLET [Suspect]
     Dosage: 20 MG, DAILY, ORAL
     Route: 048
     Dates: start: 20030929, end: 20031002
  5. TETRAZEPAM (TETRAZEPAM) [Suspect]
     Dosage: 0.5 DF, DAILY, ORAL
     Route: 048
     Dates: start: 20030929, end: 20031004
  6. LOSARTAN (LOSARTAN) [Suspect]
     Dosage: 1 DF, DAILY, ORAL
     Route: 048
     Dates: start: 20030101, end: 20031004

REACTIONS (2)
  - PRURITUS [None]
  - RASH PUSTULAR [None]
